FAERS Safety Report 10196386 (Version 2)
Quarter: 2014Q3

REPORT INFORMATION
  Report Type: Spontaneous
  Country: US (occurrence: US)
  Receive Date: 20140527
  Receipt Date: 20140703
  Transmission Date: 20150326
  Serious: Yes (Hospitalization, Other)
  Sender: FDA-Public Use
  Company Number: US-NOVOPROD-410467

PATIENT
  Age: 32 Year
  Sex: Male
  Weight: 195.1 kg

DRUGS (3)
  1. VICTOZA [Suspect]
     Active Substance: LIRAGLUTIDE
     Dosage: 1.8 MG, QD
     Route: 058
  2. JANUVIA [Concomitant]
     Active Substance: SITAGLIPTIN PHOSPHATE
     Indication: PRODUCT USED FOR UNKNOWN INDICATION
  3. VICTOZA [Suspect]
     Active Substance: LIRAGLUTIDE
     Indication: TYPE 2 DIABETES MELLITUS
     Dosage: INITIATED VICTOZA BETWEEN 09-OCT-2012 TO 30-JUL-2013
     Route: 058

REACTIONS (2)
  - Myasthenia gravis [Not Recovered/Not Resolved]
  - Thymoma malignant [Recovered/Resolved]

NARRATIVE: CASE EVENT DATE: 201311
